FAERS Safety Report 20319283 (Version 1)
Quarter: 2022Q1

REPORT INFORMATION
  Report Type: Spontaneous
  Country: DE (occurrence: DE)
  Receive Date: 20220110
  Receipt Date: 20220110
  Transmission Date: 20220423
  Serious: Yes (Hospitalization)
  Sender: FDA-Public Use
  Company Number: DE-ADRED-07598-01

PATIENT
  Age: 85 Year
  Sex: Female

DRUGS (9)
  1. ATORVASTATIN [Suspect]
     Active Substance: ATORVASTATIN
     Indication: Product used for unknown indication
     Dosage: 80 MILLIGRAM (80 MG, PAUSIERT, TABLETTEN)
     Route: 048
  2. ALLOPURINOL [Suspect]
     Active Substance: ALLOPURINOL
     Dosage: 100 MILLIGRAM (100 MG, PAUSIERT, TABLETTEN)
     Route: 048
  3. METAMIZOL [Concomitant]
     Active Substance: METAMIZOLE SODIUM
     Dosage: 500 MILLIGRAM, BID (500 MG, 1-0-1-0, TABLETTEN)
     Route: 048
  4. RAMIPRIL [Concomitant]
     Active Substance: RAMIPRIL
     Dosage: 5 MILLIGRAM (5 MG, 0.5-0-0.5-0, TABLETTEN)
     Route: 048
  5. PANTOPRAZOLE SODIUM [Concomitant]
     Active Substance: PANTOPRAZOLE SODIUM
     Dosage: 40 MILLIGRAM, QD (40 MG, 1-0-0-0, RETARD-TABLETTEN)
     Route: 048
  6. SITAGLIPTIN [Concomitant]
     Active Substance: SITAGLIPTIN
     Dosage: 100 MILLIGRAM, QD (100 MG, 0-1-0-0, TABLETTEN)
     Route: 048
  7. TORSEMIDE [Concomitant]
     Active Substance: TORSEMIDE
     Dosage: 5 MILLIGRAM, QD (5 MG, 1-0-0-0, TABLETTEN)
     Route: 048
  8. BISOPROLOL [Concomitant]
     Active Substance: BISOPROLOL
     Dosage: 5 MILLIGRAM, QD (5 MG, 1-0-0-0, TABLETTEN)
     Route: 048
  9. APIXABAN [Concomitant]
     Active Substance: APIXABAN
     Dosage: 2.5 MILLIGRAM, BID (2.5 MG, 1-0-1-0, TABLETTEN)
     Route: 048

REACTIONS (4)
  - Faeces pale [Unknown]
  - Abdominal pain [Unknown]
  - Liver function test abnormal [Unknown]
  - Abdominal pain upper [Unknown]
